FAERS Safety Report 10195016 (Version 5)
Quarter: 2015Q2

REPORT INFORMATION
  Report Type: Spontaneous
  Country: JP (occurrence: JP)
  Receive Date: 20140526
  Receipt Date: 20150416
  Transmission Date: 20150821
  Serious: Yes (Other)
  Sender: FDA-Public Use
  Company Number: PHHY2014JP060214

PATIENT
  Age: 70 Year
  Sex: Male

DRUGS (1)
  1. GLIVEC [Suspect]
     Active Substance: IMATINIB MESYLATE
     Indication: CHRONIC MYELOID LEUKAEMIA
     Dosage: 300 MG, QD
     Route: 048
     Dates: start: 200603

REACTIONS (4)
  - Squamous cell carcinoma of skin [Recovered/Resolved]
  - Second primary malignancy [Recovered/Resolved]
  - Ulcer [Unknown]
  - Nodule [Unknown]

NARRATIVE: CASE EVENT DATE: 201307
